FAERS Safety Report 20841689 (Version 2)
Quarter: 2022Q2

REPORT INFORMATION
  Report Type: Report from Study
  Country: FR (occurrence: None)
  Receive Date: 20220518
  Receipt Date: 20220606
  Transmission Date: 20220721
  Serious: Yes (Hospitalization)
  Sender: FDA-Public Use
  Company Number: FR-ROCHE-3095348

PATIENT
  Sex: Male
  Weight: 68 kg

DRUGS (2)
  1. PLACEBO [Suspect]
     Active Substance: UNSPECIFIED INGREDIENT
     Indication: Squamous cell carcinoma of head and neck
     Dosage: ON 06/MAY/2022, THE PATIENT RECEIVED MOST RECENT DOSE PRIOR TO AE.
     Route: 042
  2. ATEZOLIZUMAB [Suspect]
     Active Substance: ATEZOLIZUMAB
     Indication: Squamous cell carcinoma of head and neck
     Dosage: ON 06/MAY/2022, THE PATIENT RECEIVED MOST RECENT DOSE 1200 MG PRIOR TO AE.
     Route: 041
     Dates: start: 20220415

REACTIONS (1)
  - Respiratory distress [Not Recovered/Not Resolved]

NARRATIVE: CASE EVENT DATE: 20220510
